FAERS Safety Report 8844728 (Version 1)
Quarter: 2012Q4

REPORT INFORMATION
  Report Type: 
  Country: US (occurrence: US)
  Receive Date: 20121017
  Receipt Date: 20121017
  Transmission Date: 20130627
  Serious: No
  Sender: FDA-Public Use
  Company Number: US-BAYER-2012-108294

PATIENT
  Age: 65 Year
  Sex: Male

DRUGS (6)
  1. LEVITRA [Suspect]
     Indication: ERECTILE DYSFUNCTION
     Dosage: 20 mg, once per week
     Route: 048
     Dates: start: 20121014
  2. MULTIVITAMIN [Concomitant]
  3. METHOTREXATE [Concomitant]
     Indication: ARTHRITIS
  4. ECHINACEA [Concomitant]
  5. BYSTOLIC [Concomitant]
     Indication: HYPERTENSION
  6. POTASSIUM [Concomitant]

REACTIONS (2)
  - Erectile dysfunction [None]
  - Erectile dysfunction [None]
